FAERS Safety Report 25654911 (Version 1)
Quarter: 2025Q3

REPORT INFORMATION
  Report Type: Spontaneous
  Country: US (occurrence: None)
  Receive Date: 20250807
  Receipt Date: 20250807
  Transmission Date: 20251021
  Serious: Yes (Hospitalization)
  Sender: FDA-CTU
  Company Number: None

PATIENT
  Sex: Female

DRUGS (11)
  1. XOLAIR [Suspect]
     Active Substance: OMALIZUMAB
     Indication: Urticaria
     Dosage: FREQUENCY : EVERY OTHER WEEK;?
     Route: 058
     Dates: start: 20241212
  2. IBOTOX INJ 100UNIT [Concomitant]
  3. CETIRIZINE HCL [Concomitant]
     Active Substance: CETIRIZINE HYDROCHLORIDE
  4. CLONIDINE TAB 0.1 MG [Concomitant]
  5. CYMBALTA CAP 30MG [Concomitant]
  6. FAMOTIDINE [Concomitant]
     Active Substance: FAMOTIDINE
  7. GABAPENTIN [Concomitant]
     Active Substance: GABAPENTIN
  8. IVABRADINE TAB [Concomitant]
  9. MAGNESIUM TAB 250MG [Concomitant]
  10. NEXPLANON IMP [Concomitant]
  11. NURTEC TAB 75MG ODT [Concomitant]

REACTIONS (1)
  - Therapy interrupted [None]
